FAERS Safety Report 17432062 (Version 1)
Quarter: 2020Q1

REPORT INFORMATION
  Report Type: Spontaneous
  Country: US (occurrence: US)
  Receive Date: 20200218
  Receipt Date: 20200218
  Transmission Date: 20200409
  Serious: Yes (Life-Threatening, Hospitalization)
  Sender: FDA-Public Use
  Company Number: US-GEHC-2020CSU000688

PATIENT
  Age: 24 Year
  Sex: Female

DRUGS (2)
  1. OMNIPAQUE [Suspect]
     Active Substance: IOHEXOL
     Indication: ANGIOGRAM
     Dosage: 50 ML, SINGLE
     Route: 042
  2. OMNIPAQUE [Suspect]
     Active Substance: IOHEXOL
     Indication: DYSPNOEA

REACTIONS (3)
  - Thyrotoxic crisis [Recovering/Resolving]
  - Cardiac failure acute [Recovering/Resolving]
  - Abortion spontaneous [Recovered/Resolved]
